FAERS Safety Report 6288307-7 (Version None)
Quarter: 2009Q3

REPORT INFORMATION
  Report Type: 
  Country: None (occurrence: None)
  Receive Date: 20090729
  Receipt Date: 20090721
  Transmission Date: 20100115
  Serious: Yes (Hospitalization)
  Sender: FDA-Public Use
  Company Number: US-PFIZER INC-2009243691

PATIENT
  Age: 68 Year
  Sex: Female
  Weight: 53 kg

DRUGS (3)
  1. BLINDED *PLACEBO [Suspect]
     Indication: NON-SMALL CELL LUNG CANCER
     Dosage: 37.5 MG, IN 21 DAYS CYCLES
     Route: 048
     Dates: start: 20090521
  2. BLINDED SUNITINIB MALATE [Suspect]
     Indication: NON-SMALL CELL LUNG CANCER
     Dosage: 37.5 MG, IN 21 DAYS CYCLES
     Route: 048
     Dates: start: 20090521
  3. ADVAIR DISKUS 100/50 [Concomitant]

REACTIONS (2)
  - ATELECTASIS [None]
  - BRONCHITIS [None]
